FAERS Safety Report 5677839-8 (Version None)
Quarter: 2008Q1

REPORT INFORMATION
  Report Type: 
  Country: None (occurrence: None)
  Receive Date: 20080314
  Receipt Date: 20061207
  Transmission Date: 20080703
  Serious: Yes (Hospitalization)
  Sender: FDA-Public Use
  Company Number: THYM-11163

PATIENT
  Age: 60 Year
  Sex: Female
  Weight: 103 kg

DRUGS (21)
  1. THYMOGLOBULIN [Suspect]
     Indication: LIVER TRANSPLANT
     Dosage: 159 MG, QD, INTRAVENOUS; 80 MG, QD, INTRAVENOUS; 85.5 MG, QD, INTRAVENOUS; 75 MG, QD, INTRAVENOUS
     Route: 042
     Dates: start: 20061018, end: 20061018
  2. THYMOGLOBULIN [Suspect]
     Indication: LIVER TRANSPLANT
     Dosage: 159 MG, QD, INTRAVENOUS; 80 MG, QD, INTRAVENOUS; 85.5 MG, QD, INTRAVENOUS; 75 MG, QD, INTRAVENOUS
     Route: 042
     Dates: start: 20061019, end: 20061020
  3. THYMOGLOBULIN [Suspect]
     Indication: LIVER TRANSPLANT
     Dosage: 159 MG, QD, INTRAVENOUS; 80 MG, QD, INTRAVENOUS; 85.5 MG, QD, INTRAVENOUS; 75 MG, QD, INTRAVENOUS
     Route: 042
     Dates: start: 20061022, end: 20061022
  4. THYMOGLOBULIN [Suspect]
     Indication: LIVER TRANSPLANT
     Dosage: 159 MG, QD, INTRAVENOUS; 80 MG, QD, INTRAVENOUS; 85.5 MG, QD, INTRAVENOUS; 75 MG, QD, INTRAVENOUS
     Route: 042
     Dates: start: 20061024, end: 20061024
  5. TACROLIMUS [Concomitant]
  6. MYCOPHENOLATE MOFETIL [Concomitant]
  7. BACTRIM DS [Concomitant]
  8. VALCYTE [Concomitant]
  9. FLUCONAZOLE [Concomitant]
  10. LASIX [Concomitant]
  11. NPH INSULIN      (INSULIN INJECTION, ISOPHANE) [Concomitant]
  12. NOVOLOG [Concomitant]
  13. DIOCTYL SODIUM SULFOSUCCINATE     (DOCUSATE SODIUM) [Concomitant]
  14. MAGNESIUM PLUS  (MAGNESIUM) [Concomitant]
  15. ACTIGALL [Concomitant]
  16. PRILOSEC [Concomitant]
  17. LOPRESSOR [Concomitant]
  18. LEVOTHYROXINE SODIUM [Concomitant]
  19. NORVASC [Concomitant]
  20. KEPPRA [Concomitant]
  21. MULTIVITAMIN [Concomitant]

REACTIONS (8)
  - ALANINE AMINOTRANSFERASE INCREASED [None]
  - ASPARTATE AMINOTRANSFERASE INCREASED [None]
  - BILIRUBIN CONJUGATED INCREASED [None]
  - BLOOD ALKALINE PHOSPHATASE INCREASED [None]
  - BLOOD BILIRUBIN INCREASED [None]
  - DRUG LEVEL INCREASED [None]
  - HAEMANGIOMA OF LIVER [None]
  - HEPATIC ARTERY STENOSIS [None]
